FAERS Safety Report 16713043 (Version 3)
Quarter: 2025Q2

REPORT INFORMATION
  Report Type: Spontaneous
  Country: PL (occurrence: PL)
  Receive Date: 20190817
  Receipt Date: 20250627
  Transmission Date: 20250717
  Serious: Yes (Other)
  Sender: AUROBINDO
  Company Number: PL-AUROBINDO-AUR-APL-2019-053863

PATIENT
  Age: 65 Year
  Sex: Male

DRUGS (14)
  1. PREGABALIN [Suspect]
     Active Substance: PREGABALIN
     Indication: Product used for unknown indication
     Dosage: 300 MILLIGRAM, ONCE A DAY(150 MG, BID )
     Route: 065
  2. PREGABALIN [Suspect]
     Active Substance: PREGABALIN
     Dosage: 150 MILLIGRAM, ONCE A DAY (75 MG, BID)
     Route: 065
  3. ACETAMINOPHEN [Suspect]
     Active Substance: ACETAMINOPHEN
     Indication: Product used for unknown indication
     Dosage: 4 GRAM, ONCE A DAY
     Route: 065
  4. FENTANYL BUCCAL [Suspect]
     Active Substance: FENTANYL CITRATE
     Indication: Prophylaxis
     Route: 065
  5. FENTANYL BUCCAL [Suspect]
     Active Substance: FENTANYL CITRATE
     Route: 065
  6. FENTANYL BUCCAL [Suspect]
     Active Substance: FENTANYL CITRATE
     Route: 060
  7. FENTANYL BUCCAL [Suspect]
     Active Substance: FENTANYL CITRATE
     Route: 060
  8. DULOXETINE [Suspect]
     Active Substance: DULOXETINE
     Indication: Product used for unknown indication
     Route: 065
  9. DULOXETINE [Suspect]
     Active Substance: DULOXETINE
     Dosage: 60 MILLIGRAM, ONCE A DAY
     Route: 065
  10. DULOXETINE [Suspect]
     Active Substance: DULOXETINE
     Dosage: 120 MILLIGRAM, ONCE A DAY
     Route: 065
  11. OXYCODONE [Suspect]
     Active Substance: OXYCODONE
     Indication: Product used for unknown indication
     Dosage: 80 MILLIGRAM, ONCE A DAY
     Route: 065
  12. BUPRENORPHINE [Suspect]
     Active Substance: BUPRENORPHINE
     Indication: Product used for unknown indication
     Route: 062
  13. BUPRENORPHINE [Suspect]
     Active Substance: BUPRENORPHINE
     Route: 062
  14. BUPRENORPHINE [Suspect]
     Active Substance: BUPRENORPHINE
     Dosage: 35 MILLIGRAM, EVERY HOUR
     Route: 062

REACTIONS (7)
  - Neuralgia [Recovered/Resolved]
  - Suicidal ideation [Recovered/Resolved]
  - Apathy [Recovered/Resolved]
  - Somnolence [Recovered/Resolved]
  - Drug ineffective [Recovered/Resolved]
  - Pain [Recovered/Resolved]
  - Neoplasm progression [Unknown]
